FAERS Safety Report 14660700 (Version 3)
Quarter: 2018Q2

REPORT INFORMATION
  Report Type: Spontaneous
  Country: US (occurrence: US)
  Receive Date: 20180320
  Receipt Date: 20180504
  Transmission Date: 20180711
  Serious: No
  Sender: FDA-Public Use
  Company Number: US-009507513-1803USA007959

PATIENT
  Sex: Female
  Weight: 91.16 kg

DRUGS (1)
  1. NEXPLANON [Suspect]
     Active Substance: ETONOGESTREL
     Indication: CONTRACEPTION
     Dosage: ONE ROD (68 MG) PER 3 YEARS
     Route: 059
     Dates: start: 20180308, end: 20180313

REACTIONS (3)
  - Device deployment issue [Recovered/Resolved]
  - Skin irritation [Unknown]
  - Device dislocation [Recovered/Resolved]

NARRATIVE: CASE EVENT DATE: 2018
